FAERS Safety Report 19574034 (Version 1)
Quarter: 2021Q3

REPORT INFORMATION
  Report Type: Spontaneous
  Country: US (occurrence: US)
  Receive Date: 20210718
  Receipt Date: 20210718
  Transmission Date: 20211014
  Serious: No
  Sender: FDA-Public Use
  Company Number: US-AMGEN-USASP2021106033

PATIENT
  Age: 77 Year
  Sex: Female
  Weight: 68.03 kg

DRUGS (1)
  1. OTEZLA [Suspect]
     Active Substance: APREMILAST
     Indication: PSORIATIC ARTHROPATHY
     Dosage: 10 MILLIGRAM (STARTER PACK)
     Route: 065
     Dates: start: 20210622

REACTIONS (5)
  - Diarrhoea [Unknown]
  - Joint swelling [Not Recovered/Not Resolved]
  - Musculoskeletal disorder [Not Recovered/Not Resolved]
  - Back pain [Not Recovered/Not Resolved]
  - Nausea [Not Recovered/Not Resolved]

NARRATIVE: CASE EVENT DATE: 2021
